FAERS Safety Report 4621351-1 (Version None)
Quarter: 2005Q1

REPORT INFORMATION
  Report Type: 
  Country: None (occurrence: None)
  Receive Date: 20050328
  Receipt Date: 20050316
  Transmission Date: 20050727
  Serious: Yes (Other)
  Sender: FDA-Public Use
  Company Number: 2005047730

PATIENT
  Age: 41 Year
  Sex: Female
  Weight: 56.246 kg

DRUGS (3)
  1. FRESHBURST LISTERINE ANTISEPTIC (MENTHOL, METHYL SALICYLATE, EUCALYPTO [Suspect]
     Indication: INFECTION
     Dosage: BID, (Q2H, DURING INFECTION); ORAL
     Route: 048
     Dates: start: 20050201, end: 20050209
  2. ASCORBIC ACID [Concomitant]
  3. IBUPROFEN [Concomitant]

REACTIONS (15)
  - BACTERIAL INFECTION [None]
  - CHEILITIS [None]
  - CHEST PAIN [None]
  - DYSPNOEA [None]
  - ESCHERICHIA INFECTION [None]
  - GLOSSODYNIA [None]
  - HERPES SIMPLEX [None]
  - HYPERSENSITIVITY [None]
  - HYPOAESTHESIA ORAL [None]
  - LOCALISED INFECTION [None]
  - PARAESTHESIA ORAL [None]
  - SCAR [None]
  - SWELLING FACE [None]
  - TONGUE HAEMORRHAGE [None]
  - TONGUE ULCERATION [None]
